FAERS Safety Report 4428604-0 (Version None)
Quarter: 2004Q3

REPORT INFORMATION
  Report Type: 
  Country: None (occurrence: None)
  Receive Date: 20040813
  Receipt Date: 20040730
  Transmission Date: 20050211
  Serious: Yes (Hospitalization)
  Sender: FDA-Public Use
  Company Number: 2004IM000770

PATIENT
  Age: 65 Year
  Sex: Male

DRUGS (4)
  1. ADVAFERON (A643_INTERFERON ALFACON-1) [Suspect]
     Indication: HEPATITIS C
     Dosage: 18 MU; QD; SUBCUTANEOUS
     Route: 058
     Dates: start: 20040326, end: 20040707
  2. PAROXETINE HYDROCHLORIDE [Concomitant]
  3. GLIMEPIRIDE [Concomitant]
  4. BROTIZOLAM [Concomitant]

REACTIONS (1)
  - MENINGITIS [None]
